FAERS Safety Report 6682060-0 (Version None)
Quarter: 2010Q2

REPORT INFORMATION
  Report Type: 
  Country: None (occurrence: None)
  Receive Date: 20100415
  Receipt Date: 20100408
  Transmission Date: 20101027
  Serious: Yes (Hospitalization)
  Sender: FDA-Public Use
  Company Number: 2008BI004023

PATIENT
  Age: 60 Year
  Sex: Male

DRUGS (2)
  1. TYSABRI [Suspect]
     Indication: MULTIPLE SCLEROSIS
     Route: 042
     Dates: start: 20070907, end: 20071231
  2. TYSABRI [Suspect]
     Route: 042
     Dates: start: 20091105

REACTIONS (8)
  - APPENDICITIS [None]
  - ASTHENIA [None]
  - BALANCE DISORDER [None]
  - COLON CANCER [None]
  - MEMORY IMPAIRMENT [None]
  - MUSCULAR WEAKNESS [None]
  - POSTOPERATIVE ILEUS [None]
  - SKIN DISCOLOURATION [None]
